FAERS Safety Report 17682753 (Version 2)
Quarter: 2020Q3

REPORT INFORMATION
  Report Type: Report from Study
  Country: None (occurrence: DE)
  Receive Date: 20200419
  Receipt Date: 20200803
  Transmission Date: 20201102
  Serious: Yes (Hospitalization)
  Sender: FDA-Public Use
  Company Number: DE-ABBVIE-20K-062-3369529-00

PATIENT
  Age: 64 Year
  Sex: Female

DRUGS (3)
  1. RINVOQ [Suspect]
     Active Substance: UPADACITINIB
     Indication: RHEUMATOID ARTHRITIS
     Dosage: DRUG STOPPED BETWEEN 11 APR 2017 26 OCT 2017
     Route: 048
     Dates: start: 20161125, end: 2017
  2. MTX [Concomitant]
     Active Substance: METHOTREXATE SODIUM
     Indication: PRODUCT USED FOR UNKNOWN INDICATION
     Dosage: DRUG STOPPED 24 APR 2012
  3. RINVOQ [Suspect]
     Active Substance: UPADACITINIB
     Dosage: DRUG STOPPED BETWEEN 11 APR 2017 26 OCT 2017
     Route: 048
     Dates: start: 20161125

REACTIONS (1)
  - Spinal stenosis [Recovered/Resolved]

NARRATIVE: CASE EVENT DATE: 20191111
